FAERS Safety Report 8192316-0 (Version None)
Quarter: 2012Q1

REPORT INFORMATION
  Report Type: 
  Country: None (occurrence: None)
  Receive Date: 20120307
  Receipt Date: 20120227
  Transmission Date: 20120608
  Serious: Yes (Hospitalization)
  Sender: FDA-Public Use
  Company Number: US-ASTRAZENECA-2011SE66405

PATIENT
  Age: 68 Year
  Sex: Female
  Weight: 88 kg

DRUGS (2)
  1. PULMICORT FLEXHALER [Suspect]
     Dosage: THREE PUFFS TWICE A DAY
     Route: 055
  2. PULMICORT FLEXHALER [Suspect]
     Route: 055

REACTIONS (2)
  - DYSPNOEA [None]
  - HEART RATE INCREASED [None]
